FAERS Safety Report 25473743 (Version 1)
Quarter: 2025Q2

REPORT INFORMATION
  Report Type: Report from Study
  Country: MX (occurrence: MX)
  Receive Date: 20250624
  Receipt Date: 20250624
  Transmission Date: 20250717
  Serious: Yes (Disabling)
  Sender: DAIICHI
  Company Number: MX-AstraZeneca-CH-00869076A

PATIENT
  Age: 81 Year
  Sex: Female
  Weight: 63 kg

DRUGS (1)
  1. ENHERTU [Suspect]
     Active Substance: FAM-TRASTUZUMAB DERUXTECAN-NXKI
     Indication: HER2 positive breast cancer
     Dosage: 300 MG, ONCE EVERY 3 WK
     Route: 042
     Dates: start: 20250303

REACTIONS (11)
  - Mobility decreased [Recovering/Resolving]
  - Fatigue [Recovering/Resolving]
  - Hypersomnia [Recovering/Resolving]
  - Dizziness [Not Recovered/Not Resolved]
  - Decreased appetite [Not Recovered/Not Resolved]
  - Constipation [Not Recovered/Not Resolved]
  - Insomnia [Not Recovered/Not Resolved]
  - Asthenia [Recovering/Resolving]
  - Fatigue [Unknown]
  - Nausea [Not Recovered/Not Resolved]
  - Food intolerance [Not Recovered/Not Resolved]

NARRATIVE: CASE EVENT DATE: 20250303
